FAERS Safety Report 13757002 (Version 1)
Quarter: 2017Q3

REPORT INFORMATION
  Report Type: Spontaneous
  Country: KR (occurrence: KR)
  Receive Date: 20170714
  Receipt Date: 20170714
  Transmission Date: 20171127
  Serious: Yes (Life-Threatening, Other)
  Sender: FDA-Public Use
  Company Number: KR-ALLERGAN-1727342US

PATIENT
  Age: 35 Year
  Sex: Female

DRUGS (2)
  1. VISTABEL [Suspect]
     Active Substance: BOTULINUM TOXIN TYPE A
     Indication: HYPERTROPHY
     Dosage: 25 UNITS, SINGLE
     Route: 030
     Dates: start: 201206, end: 201206
  2. VISTABEL [Suspect]
     Active Substance: BOTULINUM TOXIN TYPE A
     Dosage: 25 UNITS, SINGLE
     Route: 030
     Dates: start: 201206, end: 201206

REACTIONS (3)
  - Angioedema [Recovering/Resolving]
  - Anaphylactic reaction [Recovering/Resolving]
  - Off label use [Unknown]

NARRATIVE: CASE EVENT DATE: 201206
